FAERS Safety Report 6345115-6 (Version None)
Quarter: 2009Q3

REPORT INFORMATION
  Report Type: 
  Country: None (occurrence: None)
  Receive Date: 20090909
  Receipt Date: 20070529
  Transmission Date: 20100115
  Serious: Yes (Other)
  Sender: FDA-Public Use
  Company Number: US-ASTRAZENECA-2006UW12216

PATIENT
  Age: 30 Year
  Sex: Male
  Weight: 131.1 kg

DRUGS (18)
  1. SEROQUEL [Suspect]
     Indication: SLEEP DISORDER
     Dosage: 100-200 MG AT BEDTIME
     Route: 048
     Dates: start: 19991223
  2. ZYPREXA [Concomitant]
  3. GEODON [Concomitant]
     Dates: start: 19990101
  4. RISPERDAL [Concomitant]
     Dates: start: 19990101, end: 20050101
  5. RISPERDAL [Concomitant]
     Dates: start: 20050404
  6. PAXIL [Concomitant]
  7. ZOLOFT [Concomitant]
     Indication: BIPOLAR I DISORDER
     Dosage: 50-100 MG
     Dates: start: 19990415
  8. WELLBUTRIN [Concomitant]
  9. EFFEXOR XR [Concomitant]
     Dosage: 37.5-75 MG
     Route: 048
     Dates: start: 19970103
  10. ALBUTEROL [Concomitant]
     Dates: start: 20000208
  11. ESKALITH CR [Concomitant]
     Dosage: 400-500 MG
     Dates: start: 20000208
  12. GLUCOPHAGE [Concomitant]
     Route: 048
     Dates: start: 20010916
  13. LIPITOR [Concomitant]
     Indication: HYPERLIPIDAEMIA
     Dosage: 20-40 MG
     Route: 048
     Dates: start: 20010916
  14. DESYREL [Concomitant]
     Route: 048
     Dates: start: 19970103
  15. CLONAZEPAM [Concomitant]
     Dates: start: 20050404
  16. PRANDIN [Concomitant]
     Dates: start: 20050404
  17. ALTACE [Concomitant]
     Dates: start: 20061027
  18. LORTAB [Concomitant]
     Dates: start: 20070217

REACTIONS (4)
  - BLOOD GLUCOSE INCREASED [None]
  - DIABETES MELLITUS [None]
  - DIABETIC RETINOPATHY [None]
  - TYPE 2 DIABETES MELLITUS [None]
